FAERS Safety Report 8307435 (Version 4)
Quarter: 2015Q2

REPORT INFORMATION
  Report Type: Report from Study
  Country: IT (occurrence: IT)
  Receive Date: 20111222
  Receipt Date: 20150626
  Transmission Date: 20150821
  Serious: Yes (Other)
  Sender: FDA-Public Use
  Company Number: IT-ROCHE-1021078

PATIENT

DRUGS (3)
  1. RITUXIMAB [Suspect]
     Active Substance: RITUXIMAB
     Indication: MANTLE CELL LYMPHOMA
     Route: 042
  2. CYTARABINE. [Suspect]
     Active Substance: CYTARABINE
     Indication: MANTLE CELL LYMPHOMA
     Route: 042
  3. BENDAMUSTINE [Suspect]
     Active Substance: BENDAMUSTINE
     Indication: MANTLE CELL LYMPHOMA
     Route: 042

REACTIONS (13)
  - Gamma-glutamyltransferase increased [Unknown]
  - Thrombocytopenia [Unknown]
  - Anaemia [Unknown]
  - Neutropenia [Unknown]
  - Pneumonitis [Unknown]
  - Fatigue [Unknown]
  - Bone marrow failure [Unknown]
  - Pulmonary oedema [Unknown]
  - Alanine aminotransferase increased [Recovered/Resolved]
  - Leukopenia [Unknown]
  - Infection [Unknown]
  - Febrile neutropenia [Unknown]
  - Aspartate aminotransferase increased [Recovered/Resolved]
